FAERS Safety Report 10673163 (Version 7)
Quarter: 2015Q3

REPORT INFORMATION
  Report Type: Report from Study
  Country: ID (occurrence: ID)
  Receive Date: 20141224
  Receipt Date: 20150715
  Transmission Date: 20151125
  Serious: Yes (Disabling, Other)
  Sender: FDA-Public Use
  Company Number: ID-ROCHE-1436376

PATIENT
  Age: 70 Year
  Sex: Male
  Weight: 50 kg

DRUGS (7)
  1. LACTULOSE. [Concomitant]
     Active Substance: LACTULOSE
     Indication: CONSTIPATION
     Dosage: 1 TABLESPOON
     Route: 048
     Dates: start: 20140430
  2. VINCRISTINE [Suspect]
     Active Substance: VINCRISTINE
     Indication: DIFFUSE LARGE B-CELL LYMPHOMA
     Route: 065
     Dates: end: 20140814
  3. CURCUMIN [Concomitant]
     Active Substance: CURCUMIN
     Indication: BLOOD ALKALINE PHOSPHATASE INCREASED
     Dosage: EXTRACT, 1 TABLET
     Route: 048
     Dates: start: 20140430
  4. RITUXIMAB [Suspect]
     Active Substance: RITUXIMAB
     Indication: DIFFUSE LARGE B-CELL LYMPHOMA
     Dosage: DATE OF LAST DOSE PRIOR TO SAE 27/JUN/2014
     Route: 042
     Dates: start: 20140425, end: 20140814
  5. BISACODYL. [Concomitant]
     Active Substance: BISACODYL
     Indication: CONSTIPATION
     Dosage: 1 SUPPOSITORY, EVERY DAY
     Route: 054
     Dates: start: 20140430
  6. CIPROFLOXACIN. [Concomitant]
     Active Substance: CIPROFLOXACIN
     Indication: BRONCHITIS
     Route: 048
     Dates: start: 20140715, end: 20140722
  7. N-ACETYLCYSTEINE [Concomitant]
     Active Substance: ACETYLCYSTEINE
     Indication: BRONCHITIS
     Route: 048
     Dates: start: 20140715, end: 20140725

REACTIONS (2)
  - Myopathy [Not Recovered/Not Resolved]
  - Neuropathy peripheral [Not Recovered/Not Resolved]

NARRATIVE: CASE EVENT DATE: 20140703
